FAERS Safety Report 21880534 (Version 5)
Quarter: 2024Q1

REPORT INFORMATION
  Report Type: Spontaneous
  Country: US (occurrence: US)
  Receive Date: 20230118
  Receipt Date: 20240216
  Transmission Date: 20240410
  Serious: No
  Sender: FDA-Public Use
  Company Number: US-PFIZER INC-202300016320

PATIENT
  Sex: Female

DRUGS (1)
  1. DEPO-PROVERA [Suspect]
     Active Substance: MEDROXYPROGESTERONE ACETATE
     Indication: Contraception
     Dosage: 150 MG (Q 3MONTHS/ EVERY 3 MONTHS)
     Route: 030

REACTIONS (3)
  - Incorrect dose administered by device [Unknown]
  - Poor quality product administered [Unknown]
  - Product physical issue [Unknown]
